FAERS Safety Report 9737153 (Version 2)
Quarter: 2013Q4

REPORT INFORMATION
  Report Type: Spontaneous
  Country: US (occurrence: US)
  Receive Date: 20131206
  Receipt Date: 20131223
  Transmission Date: 20140711
  Serious: No
  Sender: FDA-Public Use
  Company Number: US-PFIZER INC-2013344838

PATIENT
  Sex: Female

DRUGS (16)
  1. AZITHROMYCIN [Suspect]
     Dosage: UNK
  2. DOXYCYCLINE HYCLATE [Suspect]
     Dosage: UNK
  3. SERTRALINE HCL [Suspect]
     Dosage: UNK
  4. CLINDAMYCIN HCL [Suspect]
     Dosage: UNK
  5. METAXALONE [Suspect]
     Dosage: UNK
  6. METRONIDAZOLE [Suspect]
     Dosage: UNK
  7. PANTOPRAZOLE [Suspect]
     Dosage: UNK
  8. OXYCODONE HYDROCHLORIDE [Suspect]
     Dosage: UNK
  9. CEFIXIME [Suspect]
     Dosage: UNK
  10. E-MYCIN [Suspect]
     Dosage: UNK
  11. FENTANYL [Suspect]
     Dosage: UNK
  12. CIPRO [Suspect]
     Dosage: UNK
  13. CEPHALEXIN [Suspect]
     Dosage: UNK
  14. HYDROCODONE [Suspect]
     Dosage: UNK
  15. LANSOPRAZOL [Suspect]
     Dosage: UNK
  16. TRAMADOL [Suspect]
     Dosage: UNK

REACTIONS (1)
  - Drug hypersensitivity [Unknown]
